FAERS Safety Report 24163116 (Version 1)
Quarter: 2024Q3

REPORT INFORMATION
  Report Type: Spontaneous
  Country: JP (occurrence: JP)
  Receive Date: 20240801
  Receipt Date: 20240801
  Transmission Date: 20241017
  Serious: Yes (Other)
  Sender: ABBVIE
  Company Number: JP-ABBVIE-5862738

PATIENT
  Age: 70 Year
  Sex: Male

DRUGS (2)
  1. ALPHAGAN P [Suspect]
     Active Substance: BRIMONIDINE TARTRATE
     Indication: Glaucoma
     Dosage: OPHTHALMIC SOLUTION 0.1%, DAILY DOSE: 2 DROP
     Route: 047
     Dates: start: 202004, end: 202401
  2. CARTEOLOL HYDROCHLORIDE\LATANOPROST [Suspect]
     Active Substance: CARTEOLOL HYDROCHLORIDE\LATANOPROST
     Indication: Product used for unknown indication
     Dosage: COMBINATION OPHTHALMIC SOLUTION, DAILY DOSE:1 DROP
     Route: 047
     Dates: start: 201904, end: 202401

REACTIONS (1)
  - Corneal opacity [Not Recovered/Not Resolved]

NARRATIVE: CASE EVENT DATE: 20240110
